FAERS Safety Report 10364830 (Version 2)
Quarter: 2014Q3

REPORT INFORMATION
  Report Type: Spontaneous
  Country: JP (occurrence: JP)
  Receive Date: 20140806
  Receipt Date: 20140819
  Transmission Date: 20150326
  Serious: Yes (Hospitalization)
  Sender: FDA-Public Use
  Company Number: JP-MYLAN-2014S1017935

PATIENT

DRUGS (2)
  1. CARVEDILOL. [Suspect]
     Active Substance: CARVEDILOL
     Dosage: 20 MG,UNK
     Route: 048
  2. LOSARTAN [Suspect]
     Active Substance: LOSARTAN
     Dosage: 50 MG,UNK
     Route: 048

REACTIONS (5)
  - Altered state of consciousness [Recovering/Resolving]
  - Blood potassium increased [Recovering/Resolving]
  - Feeling abnormal [None]
  - Loss of consciousness [None]
  - Bradycardia [Recovering/Resolving]
